FAERS Safety Report 8604337-1 (Version None)
Quarter: 2012Q3

REPORT INFORMATION
  Report Type: 
  Country: None (occurrence: None)
  Receive Date: 20120807
  Receipt Date: 20120726
  Transmission Date: 20120928
  Serious: Yes (Life-Threatening)
  Sender: FDA-Public Use
  Company Number: GER/ITL/12/0022788

PATIENT
  Age: 45 Year
  Sex: Male

DRUGS (6)
  1. METOPROLOL TARTRATE [Concomitant]
  2. ASPIRIN [Concomitant]
  3. CLOPIDOGREL [Suspect]
     Indication: ISCHAEMIC HEART DISEASE PROPHYLAXIS
     Dosage: 75 MG, ORAL
     Route: 048
     Dates: start: 20111207, end: 20120113
  4. ASPIRIN [Suspect]
     Indication: ANTIPLATELET THERAPY
  5. ATORVASTATIN [Concomitant]
  6. FUROSEMIDE [Concomitant]

REACTIONS (2)
  - THROMBOSIS IN DEVICE [None]
  - ACUTE MYOCARDIAL INFARCTION [None]
